FAERS Safety Report 12631264 (Version 2)
Quarter: 2016Q3

REPORT INFORMATION
  Report Type: Spontaneous
  Country: US (occurrence: US)
  Receive Date: 20160808
  Receipt Date: 20160808
  Transmission Date: 20161109
  Serious: No
  Sender: FDA-Public Use
  Company Number: US-BEH-2015053097

PATIENT
  Sex: Female

DRUGS (1)
  1. HIZENTRA [Suspect]
     Active Substance: HUMAN IMMUNOGLOBULIN G
     Indication: MAST CELL DEGRANULATION TEST
     Dosage: PATIENT HAD 5 INFUSIONS (THIS IS 5TH WEEK)

REACTIONS (2)
  - Drug ineffective for unapproved indication [Unknown]
  - Urticaria [Unknown]
